FAERS Safety Report 14777715 (Version 8)
Quarter: 2018Q4

REPORT INFORMATION
  Report Type: Report from Study
  Country: CN (occurrence: CN)
  Receive Date: 20180419
  Receipt Date: 20181114
  Transmission Date: 20190204
  Serious: Yes (Death, Life-Threatening, Hospitalization)
  Sender: FDA-Public Use
  Company Number: CN-ROCHE-2106395

PATIENT
  Age: 38 Year
  Sex: Female
  Weight: 51 kg

DRUGS (3)
  1. CAPECITABINE. [Suspect]
     Active Substance: CAPECITABINE
     Indication: HER-2 POSITIVE BREAST CANCER
     Dosage: ON DAYS 1-14 OF EACH 21-DAY CYCLE.?DATE OF MOST RECENT DOSE (2200 MG) PRIOR TO SAE ONSET: MAR/2018
     Route: 048
     Dates: start: 20171101
  2. TRAMADOL HYDROCHLORIDE. [Concomitant]
     Active Substance: TRAMADOL HYDROCHLORIDE
     Route: 065
     Dates: start: 20180123
  3. LAPATINIB [Suspect]
     Active Substance: LAPATINIB
     Indication: HER-2 POSITIVE BREAST CANCER
     Dosage: DATE OF MOST RECENT DOSE PRIOR TO SAE ONSET: APR/2018?FREQUENCY: ONCE PER DAY OF EACH 21-DAY CYCLE
     Route: 048
     Dates: start: 20171101

REACTIONS (2)
  - Malnutrition [Recovered/Resolved]
  - Dyspnoea [Unknown]

NARRATIVE: CASE EVENT DATE: 20180410
